FAERS Safety Report 24274394 (Version 1)
Quarter: 2024Q3

REPORT INFORMATION
  Report Type: Spontaneous
  Country: MT (occurrence: MT)
  Receive Date: 20240902
  Receipt Date: 20240902
  Transmission Date: 20241016
  Serious: Yes (Death, Life-Threatening, Disabling)
  Sender: ACCORD
  Company Number: MT-MLMSERVICE-20240814-PI162019-00249-2

PATIENT
  Age: 72 Year
  Sex: Male

DRUGS (5)
  1. OXALIPLATIN [Suspect]
     Active Substance: OXALIPLATIN
     Indication: Gastric cancer stage IV
     Dosage: HE WAS PLANNED FOR 12 CYCLES OF 2 WEEKLY FOLFOX
     Dates: start: 202107, end: 202109
  2. RALTITREXED [Suspect]
     Active Substance: RALTITREXED
     Indication: Gastric cancer stage IV
     Dosage: REDUCED DOSE OF 75%
     Dates: start: 2021, end: 2021
  3. LEUCOVORIN [Concomitant]
     Active Substance: LEUCOVORIN\LEUCOVORIN CALCIUM
     Indication: Gastric cancer stage IV
     Dosage: 4 CYCLES OF FOLFOX
     Dates: start: 202109, end: 2021
  4. LEUCOVORIN [Concomitant]
     Active Substance: LEUCOVORIN\LEUCOVORIN CALCIUM
     Indication: Gastric cancer stage IV
     Dosage: HE WAS PLANNED FOR 12 CYCLES OF 2 WEEKLY FOLFOX
     Dates: start: 202107, end: 202109
  5. OXALIPLATIN [Suspect]
     Active Substance: OXALIPLATIN
     Indication: Gastric cancer stage IV
     Dosage: REDUCED DOSE OF 75%
     Dates: start: 2021, end: 2021

REACTIONS (2)
  - Respiratory failure [Fatal]
  - Interstitial lung disease [Fatal]

NARRATIVE: CASE EVENT DATE: 20210101
